FAERS Safety Report 25949188 (Version 1)
Quarter: 2025Q4

REPORT INFORMATION
  Report Type: Spontaneous
  Country: US (occurrence: None)
  Receive Date: 20251022
  Receipt Date: 20251022
  Transmission Date: 20260119
  Serious: Yes (Other)
  Sender: FDA-CTU
  Company Number: None

PATIENT
  Age: 11 Year
  Sex: Female
  Weight: 45 kg

DRUGS (2)
  1. AMOXICILLIN [Suspect]
     Active Substance: AMOXICILLIN
     Indication: Otitis media
     Dates: start: 20251020, end: 20251021
  2. AMOXICILLIN [Suspect]
     Active Substance: AMOXICILLIN
     Indication: Tympanic membrane perforation

REACTIONS (5)
  - Product packaging quantity issue [None]
  - Product preparation error [None]
  - Abdominal discomfort [None]
  - Product preparation issue [None]
  - Accidental overdose [None]

NARRATIVE: CASE EVENT DATE: 20251020
